FAERS Safety Report 4283676-1 (Version None)
Quarter: 2004Q1

REPORT INFORMATION
  Report Type: 
  Country: None (occurrence: None)
  Receive Date: 20040115
  Receipt Date: 20030220
  Transmission Date: 20041129
  Serious: Yes (Death)
  Sender: FDA-Public Use
  Company Number: NSADSS2003008058

PATIENT
  Age: 72 Year
  Sex: Female

DRUGS (5)
  1. DOXIL [Suspect]
     Indication: OVARIAN CANCER
     Dosage: INTRAVENOUS DRIP
     Route: 041
     Dates: start: 20020401, end: 20020401
  2. PROCRIT (ERYTHROPOIETIN) INJECTION [Suspect]
     Indication: ANAEMIA
     Dosage: INTRAVENOUS DRIP
     Route: 041
  3. DURAGESIC [Suspect]
     Indication: PAIN
     Dosage: 175 UG/HR; TRANSDERMAL
     Route: 062
  4. PERCOCET [Concomitant]
  5. MORPHINE [Concomitant]

REACTIONS (2)
  - CONDITION AGGRAVATED [None]
  - NAUSEA [None]
